FAERS Safety Report 14016631 (Version 2)
Quarter: 2017Q4

REPORT INFORMATION
  Report Type: Spontaneous
  Country: US (occurrence: US)
  Receive Date: 20170927
  Receipt Date: 20171030
  Transmission Date: 20180321
  Serious: No
  Sender: FDA-Public Use
  Company Number: PHEH2017US030848

PATIENT
  Age: 64 Year
  Sex: Male
  Weight: 120.2 kg

DRUGS (1)
  1. DUREZOL [Suspect]
     Active Substance: DIFLUPREDNATE
     Indication: EYE INFECTION VIRAL
     Dosage: UNK UNK, QID
     Route: 047
     Dates: start: 20170919

REACTIONS (2)
  - Visual impairment [Unknown]
  - Vision blurred [Not Recovered/Not Resolved]

NARRATIVE: CASE EVENT DATE: 20170920
